FAERS Safety Report 25857193 (Version 1)
Quarter: 2025Q3

REPORT INFORMATION
  Report Type: Spontaneous
  Country: US (occurrence: US)
  Receive Date: 20250929
  Receipt Date: 20250929
  Transmission Date: 20251020
  Serious: Yes (Death, Other)
  Sender: AUROBINDO
  Company Number: US-AUROBINDO-AUR-APL-2025-047990

PATIENT
  Age: 37 Year
  Sex: Male

DRUGS (1)
  1. CIPROFLOXACIN [Suspect]
     Active Substance: CIPROFLOXACIN
     Indication: Cellulitis
     Route: 065

REACTIONS (5)
  - Septic shock [Fatal]
  - Multiple organ dysfunction syndrome [Fatal]
  - Acute myeloid leukaemia [Unknown]
  - Acute febrile neutrophilic dermatosis [Unknown]
  - Therapy non-responder [Unknown]
